FAERS Safety Report 5145290-5 (Version None)
Quarter: 2006Q4

REPORT INFORMATION
  Report Type: 
  Country: None (occurrence: None)
  Receive Date: 20061101
  Receipt Date: 20061018
  Transmission Date: 20070319
  Serious: Yes (Other)
  Sender: FDA-Public Use
  Company Number: 2006JP004174

PATIENT
  Age: 56 Year
  Sex: Female

DRUGS (3)
  1. VESICARE [Suspect]
     Indication: HYPERTONIC BLADDER
     Dosage: 5 MG, UID/QD, ORAL
     Route: 048
  2. EBRANTIL (URAPIDIL) [Suspect]
     Indication: DYSURIA
     Dosage: 15 MG, BID, ORAL
     Route: 048
     Dates: start: 20060929, end: 20061001
  3. BUP-4 (PROPIVERINE HYDROCHLORIDE) [Concomitant]

REACTIONS (3)
  - CHEST DISCOMFORT [None]
  - INSOMNIA [None]
  - VENTRICULAR EXTRASYSTOLES [None]
